FAERS Safety Report 12239783 (Version 1)
Quarter: 2016Q2

REPORT INFORMATION
  Report Type: Spontaneous
  Country: US (occurrence: US)
  Receive Date: 20160405
  Receipt Date: 20160405
  Transmission Date: 20160815
  Serious: No
  Sender: FDA-Public Use
  Company Number: US-ROCHE-1653187

PATIENT
  Sex: Female

DRUGS (1)
  1. ERIVEDGE [Suspect]
     Active Substance: VISMODEGIB
     Indication: BASAL CELL CARCINOMA
     Route: 048
     Dates: start: 20150916

REACTIONS (12)
  - Polydipsia [Unknown]
  - Cough [Unknown]
  - Feeling abnormal [Unknown]
  - Weight decreased [Unknown]
  - Fatigue [Unknown]
  - Skin wrinkling [Unknown]
  - Constipation [Unknown]
  - Dysgeusia [Unknown]
  - Muscle spasms [Unknown]
  - Pollakiuria [Unknown]
  - Dehydration [Unknown]
  - Nasopharyngitis [Unknown]
